FAERS Safety Report 14384387 (Version 5)
Quarter: 2018Q2

REPORT INFORMATION
  Report Type: Spontaneous
  Country: US (occurrence: US)
  Receive Date: 20180115
  Receipt Date: 20180628
  Transmission Date: 20180711
  Serious: Yes (Other)
  Sender: FDA-Public Use
  Company Number: US-NEUROCRINE BIOSCIENCES INC.-2017NBI01491

PATIENT
  Age: 80 Year
  Sex: Female
  Weight: 47.22 kg

DRUGS (9)
  1. INGREZZA [Suspect]
     Active Substance: VALBENAZINE
     Route: 048
     Dates: start: 20171102, end: 201805
  2. CBD [Concomitant]
     Active Substance: CANNABIDIOL
     Indication: ARTHRALGIA
  3. B12 INJECTIONS [Concomitant]
  4. LIDOCAINE. [Concomitant]
     Active Substance: LIDOCAINE
     Indication: ARTHRALGIA
  5. INGREZZA [Suspect]
     Active Substance: VALBENAZINE
     Route: 048
     Dates: start: 201805
  6. INGREZZA [Suspect]
     Active Substance: VALBENAZINE
     Indication: TARDIVE DYSKINESIA
     Route: 048
     Dates: start: 20171025, end: 20171101
  7. VITAMIN E [Concomitant]
     Active Substance: .ALPHA.-TOCOPHEROL
  8. VITAMIN D [Concomitant]
     Active Substance: CHOLECALCIFEROL
  9. CORTISONE [Concomitant]
     Active Substance: CORTISONE\HYDROCORTISONE
     Indication: ARTHRALGIA
     Dates: start: 201806

REACTIONS (19)
  - Hunger [Not Recovered/Not Resolved]
  - Haemorrhoid operation [Recovering/Resolving]
  - Weight decreased [Recovered/Resolved]
  - Hypokinesia [Not Recovered/Not Resolved]
  - Balance disorder [Not Recovered/Not Resolved]
  - Diarrhoea [Recovered/Resolved]
  - Muscular weakness [Not Recovered/Not Resolved]
  - Thirst [Not Recovered/Not Resolved]
  - Dry mouth [Not Recovered/Not Resolved]
  - Somnolence [Recovering/Resolving]
  - Pruritus [Not Recovered/Not Resolved]
  - Vomiting [Unknown]
  - Dysgeusia [Not Recovered/Not Resolved]
  - Nausea [Recovering/Resolving]
  - Constipation [Not Recovered/Not Resolved]
  - Blood iron decreased [Recovered/Resolved]
  - Fatigue [Recovering/Resolving]
  - Dyskinesia [Not Recovered/Not Resolved]
  - Asthenia [Not Recovered/Not Resolved]

NARRATIVE: CASE EVENT DATE: 2017
